FAERS Safety Report 9624889 (Version 1)
Quarter: 2013Q4

REPORT INFORMATION
  Report Type: Spontaneous
  Country: PL (occurrence: PL)
  Receive Date: 20131016
  Receipt Date: 20131016
  Transmission Date: 20140711
  Serious: Yes (Life-Threatening, Hospitalization)
  Sender: FDA-Public Use
  Company Number: PHHY2013PL112267

PATIENT
  Age: 27 Year
  Sex: Female

DRUGS (1)
  1. AMOKSIKLAV [Suspect]
     Dosage: 1 G, QD
     Route: 048
     Dates: start: 20130327, end: 20130327

REACTIONS (3)
  - Angioedema [Recovered/Resolved]
  - Face oedema [Recovered/Resolved]
  - Dyspnoea [Recovered/Resolved]
